FAERS Safety Report 10588247 (Version 2)
Quarter: 2014Q4

REPORT INFORMATION
  Report Type: Report from Study
  Country: US (occurrence: US)
  Receive Date: 20141117
  Receipt Date: 20141117
  Transmission Date: 20150529
  Serious: Yes (Other)
  Sender: FDA-Public Use
  Company Number: US-BRISTOL-MYERS SQUIBB COMPANY-21360839

PATIENT
  Age: 49 Year
  Sex: Female
  Weight: 81.63 kg

DRUGS (7)
  1. ZYRTEC [Concomitant]
     Active Substance: CETIRIZINE HYDROCHLORIDE
     Indication: SINUSITIS
  2. ORENCIA [Suspect]
     Active Substance: ABATACEPT
     Indication: RHEUMATOID ARTHRITIS
     Dosage: 1DF=125MG/ML ?LAST DOSE ON 28AUG2014,27OCT2014?LOT#4D80451,EXP:FEB2016
     Route: 058
     Dates: start: 2014
  3. SYNTHROID [Concomitant]
     Active Substance: LEVOTHYROXINE SODIUM
     Indication: HYPERTHYROIDISM
  4. VITAMIN B6 [Concomitant]
     Active Substance: PYRIDOXINE HYDROCHLORIDE
  5. SULFASALAZINE. [Concomitant]
     Active Substance: SULFASALAZINE
  6. PLAQUENIL [Concomitant]
     Active Substance: HYDROXYCHLOROQUINE SULFATE
  7. ISONIAZID. [Concomitant]
     Active Substance: ISONIAZID
     Indication: TUBERCULOSIS

REACTIONS (5)
  - Impaired healing [Unknown]
  - Tendonitis [Unknown]
  - Upper limb fracture [Unknown]
  - Fall [Unknown]
  - Alopecia [Unknown]

NARRATIVE: CASE EVENT DATE: 201408
